FAERS Safety Report 7028752-5 (Version None)
Quarter: 2010Q3

REPORT INFORMATION
  Report Type: 
  Country: None (occurrence: None)
  Receive Date: 20100830
  Receipt Date: 20100813
  Transmission Date: 20110219
  Serious: Yes (Death, Hospitalization)
  Sender: FDA-Public Use
  Company Number: 2010PROUSA00018

PATIENT
  Age: 49 Year
  Sex: Male
  Weight: 68 kg

DRUGS (11)
  1. PROVENGE [Suspect]
     Indication: PROSTATE CANCER METASTATIC
     Dosage: 250 ML, SINGLE, INTRAVENOUS
     Route: 042
     Dates: start: 20100701, end: 20100701
  2. MIRALAX [Concomitant]
  3. ZOFRAN 100955301/ (ONDANSETRON) [Concomitant]
  4. CELEXA [Concomitant]
  5. ATIVAN [Concomitant]
  6. REGLAN /00041901/ (METOCLOPRAMIDE) [Concomitant]
  7. PRILOSEC [Concomitant]
  8. COMPAZINE /00013302/ (PROCHLORPERAZINE EDISYLATE) [Concomitant]
  9. SENOKOT /00142201/ (SENNA ALEXANDRINA) [Concomitant]
  10. MORPHINE SULFATE INJ [Concomitant]
  11. TYLENOL /00020001/ (PARACETAMOL) [Concomitant]

REACTIONS (12)
  - ANAEMIA [None]
  - COAGULOPATHY [None]
  - EXTRADURAL HAEMATOMA [None]
  - GENERAL PHYSICAL HEALTH DETERIORATION [None]
  - INTERNATIONAL NORMALISED RATIO INCREASED [None]
  - INTRACRANIAL TUMOUR HAEMORRHAGE [None]
  - METASTASES TO CENTRAL NERVOUS SYSTEM [None]
  - SUBDURAL HAEMATOMA [None]
  - SURGICAL FAILURE [None]
  - THROMBOCYTOPENIA [None]
  - TREATMENT FAILURE [None]
  - UNRESPONSIVE TO STIMULI [None]
